FAERS Safety Report 7690491-5 (Version None)
Quarter: 2011Q3

REPORT INFORMATION
  Report Type: 
  Country: None (occurrence: None)
  Receive Date: 20110818
  Receipt Date: 20110816
  Transmission Date: 20111222
  Serious: Yes (Other)
  Sender: FDA-Public Use
  Company Number: US-PFIZER INC-2011189414

PATIENT
  Age: 35 Year
  Sex: Female

DRUGS (2)
  1. GEODON [Suspect]
     Dosage: UNK
     Route: 048
  2. LITHIUM CARBONATE [Suspect]
     Dosage: UNK

REACTIONS (2)
  - GRIMACING [None]
  - BRUXISM [None]
